FAERS Safety Report 15100946 (Version 1)
Quarter: 2018Q3

REPORT INFORMATION
  Report Type: Spontaneous
  Country: US (occurrence: US)
  Receive Date: 20180703
  Receipt Date: 20180703
  Transmission Date: 20181010
  Serious: No
  Sender: FDA-Public Use
  Company Number: US-PFIZER INC-2018266986

PATIENT
  Age: 52 Year
  Sex: Female

DRUGS (1)
  1. IBRANCE [Suspect]
     Active Substance: PALBOCICLIB
     Indication: BREAST CANCER FEMALE
     Dosage: 125 MG, CYCLIC(TAKE 1 CAPSULE BY MOUTH WITH FOOD EVERY DAY FOR 21 DAYS, THEN 7 DAYS OFF )
     Route: 048
     Dates: start: 201806

REACTIONS (3)
  - Pain [Unknown]
  - Hot flush [Unknown]
  - Fatigue [Unknown]
